FAERS Safety Report 19100739 (Version 3)
Quarter: 2021Q2

REPORT INFORMATION
  Report Type: Spontaneous
  Country: IT (occurrence: IT)
  Receive Date: 20210407
  Receipt Date: 20210506
  Transmission Date: 20210717
  Serious: Yes (Other)
  Sender: FDA-Public Use
  Company Number: IT-ROCHE-2658850

PATIENT
  Sex: Female
  Weight: 55 kg

DRUGS (1)
  1. OCREVUS [Suspect]
     Active Substance: OCRELIZUMAB
     Indication: MULTIPLE SCLEROSIS
     Route: 042
     Dates: start: 20190910, end: 20200416

REACTIONS (2)
  - Multiple sclerosis relapse [Unknown]
  - Maternal exposure before pregnancy [Unknown]
